FAERS Safety Report 20034145 (Version 1)
Quarter: 2021Q4

REPORT INFORMATION
  Report Type: Spontaneous
  Country: US (occurrence: US)
  Receive Date: 20211104
  Receipt Date: 20211104
  Transmission Date: 20220303
  Serious: Yes (Other)
  Sender: FDA-Public Use
  Company Number: US-PFIZER INC-2021702123

PATIENT
  Age: 70 Year
  Sex: Female

DRUGS (4)
  1. IBRANCE [Suspect]
     Active Substance: PALBOCICLIB
     Dosage: 75 MG, ALTERNATE DAY (EVERY OTHER DAY)
     Dates: start: 20201121
  2. IBRANCE [Suspect]
     Active Substance: PALBOCICLIB
     Dosage: 75 MG
     Dates: start: 20210502
  3. IBRANCE [Suspect]
     Active Substance: PALBOCICLIB
     Dosage: 75 MG
     Dates: start: 20210609
  4. IBRANCE [Suspect]
     Active Substance: PALBOCICLIB
     Dosage: 75 MG, ALTERNATE DAY (EVERY OTHER DAY)
     Dates: start: 20210618

REACTIONS (8)
  - Stomatitis necrotising [Not Recovered/Not Resolved]
  - Infection [Not Recovered/Not Resolved]
  - Immune system disorder [Not Recovered/Not Resolved]
  - Neoplasm progression [Unknown]
  - Nausea [Unknown]
  - Fatigue [Unknown]
  - Stomatitis [Unknown]
  - Off label use [Unknown]
